FAERS Safety Report 13144876 (Version 12)
Quarter: 2019Q1

REPORT INFORMATION
  Report Type: Report from Study
  Country: US (occurrence: US)
  Receive Date: 20170124
  Receipt Date: 20190330
  Transmission Date: 20190417
  Serious: Yes (Hospitalization, Other)
  Sender: FDA-Public Use
  Company Number: PHHY2016US070389

PATIENT
  Age: 40 Year
  Sex: Male
  Weight: 63.5 kg

DRUGS (5)
  1. ALBUTEROL. [Concomitant]
     Active Substance: ALBUTEROL
     Indication: ASTHMA
     Dosage: UNK
     Route: 065
  2. CETRIZINE [Concomitant]
     Active Substance: CETIRIZINE HYDROCHLORIDE
     Indication: HYPERSENSITIVITY
     Dosage: UNK
     Route: 065
  3. GILENYA [Suspect]
     Active Substance: FINGOLIMOD HYDROCHLORIDE
     Indication: MULTIPLE SCLEROSIS
     Dosage: UNK UNK, QD
     Route: 048
     Dates: start: 20160527, end: 20170227
  4. OXYCODONE [Concomitant]
     Active Substance: OXYCODONE
     Indication: PRODUCT USED FOR UNKNOWN INDICATION
     Dosage: UNK
     Route: 065
     Dates: start: 20170703
  5. TECFIDERA [Suspect]
     Active Substance: DIMETHYL FUMARATE
     Indication: MULTIPLE SCLEROSIS
     Dosage: 240 MG, BID
     Route: 048
     Dates: start: 20170525

REACTIONS (28)
  - Haemorrhage urinary tract [Recovered/Resolved]
  - Clear cell renal cell carcinoma [Recovered/Resolved]
  - Alanine aminotransferase increased [Recovered/Resolved]
  - Haematuria [Recovered/Resolved]
  - Pancreatic cyst [Recovered/Resolved]
  - Von Hippel-Lindau disease [Unknown]
  - Intervertebral disc disorder [Unknown]
  - Back pain [Unknown]
  - Testicular pain [Recovered/Resolved]
  - Abdominal pain lower [Unknown]
  - Urinary bladder haemorrhage [Recovered/Resolved]
  - Aspartate aminotransferase increased [Recovered/Resolved]
  - Musculoskeletal pain [Unknown]
  - Perirenal haematoma [Unknown]
  - Blood creatinine increased [Recovered/Resolved]
  - Lymphocyte count decreased [Unknown]
  - Chromaturia [Recovered/Resolved with Sequelae]
  - Renal pseudoaneurysm [Recovered/Resolved with Sequelae]
  - Hydronephrosis [Unknown]
  - Benign pancreatic neoplasm [Recovered/Resolved]
  - Intraductal papillary mucinous neoplasm [Unknown]
  - Nephrolithiasis [Recovered/Resolved]
  - Groin pain [Recovered/Resolved]
  - Haemorrhoids [Unknown]
  - Rectal polyp [Recovered/Resolved]
  - Colon adenoma [Recovered/Resolved]
  - Diverticulum [Unknown]
  - Central nervous system lesion [Unknown]

NARRATIVE: CASE EVENT DATE: 20160922
